FAERS Safety Report 6175871-1 (Version None)
Quarter: 2009Q2

REPORT INFORMATION
  Report Type: 
  Country: None (occurrence: None)
  Receive Date: 20090501
  Receipt Date: 20080817
  Transmission Date: 20091009
  Serious: Yes (Death)
  Sender: FDA-Public Use
  Company Number: US-TYCO HEALTHCARE/MALLINCKRODT-T200801357

PATIENT

DRUGS (2)
  1. METHADOSE [Suspect]
  2. VALIUM [Suspect]

REACTIONS (1)
  - DRUG TOXICITY [None]
